FAERS Safety Report 12924216 (Version 6)
Quarter: 2017Q3

REPORT INFORMATION
  Report Type: Report from Study
  Country: JP (occurrence: JP)
  Receive Date: 20161109
  Receipt Date: 20170709
  Transmission Date: 20171127
  Serious: Yes (Other)
  Sender: FDA-Public Use
  Company Number: PHJP2016JP031531

PATIENT
  Age: 64 Year
  Sex: Male
  Weight: 63 kg

DRUGS (6)
  1. CINAL [Concomitant]
     Active Substance: ASCORBIC ACID\CALCIUM PANTOTHENATE
     Indication: PRODUCT USED FOR UNKNOWN INDICATION
     Dosage: UNK
     Route: 048
  2. COSENTYX [Suspect]
     Active Substance: SECUKINUMAB
     Dosage: 300 MG, 4W
     Route: 058
  3. COSENTYX [Suspect]
     Active Substance: SECUKINUMAB
     Dosage: 300 MG, 4W
     Route: 058
     Dates: start: 20160408
  4. ISCOTIN [Concomitant]
     Active Substance: ISONIAZID
     Indication: PROPHYLAXIS
     Dosage: 100 MG, UNK
     Route: 048
     Dates: start: 20160128, end: 20160729
  5. PYRIDOXAL [Concomitant]
     Active Substance: PYRIDOXAL
     Indication: PROPHYLAXIS
     Dosage: 20 MG, UNK
     Route: 048
     Dates: start: 20160126, end: 20160729
  6. COSENTYX [Suspect]
     Active Substance: SECUKINUMAB
     Indication: PSORIASIS
     Dosage: 300 MG, QW PER ADMINISTRATION
     Route: 058
     Dates: start: 20160212

REACTIONS (11)
  - Swelling face [Unknown]
  - Platelet count decreased [Unknown]
  - Erythema [Unknown]
  - Lymphocyte count decreased [Unknown]
  - Monocyte percentage increased [Unknown]
  - C-reactive protein increased [Unknown]
  - Red blood cell sedimentation rate increased [Unknown]
  - Neutrophil count increased [Unknown]
  - Erysipelas [Recovered/Resolved]
  - Pyrexia [Unknown]
  - Eosinophil percentage decreased [Unknown]

NARRATIVE: CASE EVENT DATE: 20160311
